FAERS Safety Report 11777863 (Version 2)
Quarter: 2015Q4

REPORT INFORMATION
  Report Type: Spontaneous
  Country: US (occurrence: US)
  Receive Date: 20151125
  Receipt Date: 20151204
  Transmission Date: 20160304
  Serious: Yes (Hospitalization)
  Sender: FDA-Public Use
  Company Number: US-LPDUSPRD-20150928

PATIENT
  Age: 57 Year
  Sex: Female

DRUGS (3)
  1. ACICLOVIR [Suspect]
     Active Substance: ACYCLOVIR
     Dosage: SEE NARRATIVE
     Route: 065
  2. DEXAMETHASONE SODIUM PHOSPHATE INJECTION, USP (4901-25) [Suspect]
     Active Substance: DEXAMETHASONE SODIUM PHOSPHATE
     Dosage: SEE NARRATIVE
     Route: 065
  3. TEMOZOLOMIDE. [Suspect]
     Active Substance: TEMOZOLOMIDE
     Dosage: 75 MG/M2
     Route: 065

REACTIONS (2)
  - Herpes simplex encephalitis [Recovered/Resolved]
  - Infection [Recovered/Resolved]
